FAERS Safety Report 20624341 (Version 3)
Quarter: 2022Q2

REPORT INFORMATION
  Report Type: Report from Study
  Country: ES (occurrence: None)
  Receive Date: 20220322
  Receipt Date: 20220506
  Transmission Date: 20220721
  Serious: Yes (Death, Hospitalization)
  Sender: FDA-Public Use
  Company Number: ES-ROCHE-3048271

PATIENT
  Sex: Male
  Weight: 83 kg

DRUGS (6)
  1. BEVACIZUMAB [Suspect]
     Active Substance: BEVACIZUMAB
     Indication: Pleural mesothelioma malignant
     Dosage: LAST DOSE WAS ON 27/JAN/2022
     Route: 042
     Dates: start: 20211216
  2. ATEZOLIZUMAB [Suspect]
     Active Substance: ATEZOLIZUMAB
     Indication: Pleural mesothelioma malignant
     Dosage: LAST DOSE WAS ON 27/JAN/2022
     Route: 041
     Dates: start: 20211216
  3. CARBOPLATIN [Suspect]
     Active Substance: CARBOPLATIN
     Indication: Pleural mesothelioma malignant
     Dosage: LAST DOSE WAS ON 27/JAN/2022
     Route: 042
     Dates: start: 20211216
  4. PEMETREXED [Suspect]
     Active Substance: PEMETREXED
     Indication: Pleural mesothelioma malignant
     Dosage: LAST DOSE WAS ON 27/JAN/2022
     Route: 042
     Dates: start: 20211216
  5. ASPIRIN [Concomitant]
     Active Substance: ASPIRIN
     Indication: Prophylaxis
  6. METHYLPREDNISOLONE [Concomitant]
     Active Substance: METHYLPREDNISOLONE
     Dates: start: 20220228

REACTIONS (2)
  - Hypertransaminasaemia [Not Recovered/Not Resolved]
  - Myositis [Fatal]

NARRATIVE: CASE EVENT DATE: 20220222
